FAERS Safety Report 22146946 (Version 1)
Quarter: 2023Q1

REPORT INFORMATION
  Report Type: Spontaneous
  Country: US (occurrence: US)
  Receive Date: 20230328
  Receipt Date: 20230328
  Transmission Date: 20230418
  Serious: No
  Sender: FDA-Public Use
  Company Number: US-ELI_LILLY_AND_COMPANY-US202303011016

PATIENT
  Sex: Female

DRUGS (1)
  1. FORTEO [Suspect]
     Active Substance: TERIPARATIDE
     Indication: Osteoporosis
     Dosage: 20 UG, UNKNOWN
     Route: 058

REACTIONS (5)
  - Hiccups [Unknown]
  - Scar [Unknown]
  - Procedural pain [Not Recovered/Not Resolved]
  - Internal fixation of fracture [Unknown]
  - Injection site bruising [Not Recovered/Not Resolved]
